FAERS Safety Report 7512744-3 (Version None)
Quarter: 2011Q2

REPORT INFORMATION
  Report Type: 
  Country: None (occurrence: None)
  Receive Date: 20110531
  Receipt Date: 20110513
  Transmission Date: 20111010
  Serious: Yes (Hospitalization)
  Sender: FDA-Public Use
  Company Number: A0789811A

PATIENT
  Age: 60 Year
  Sex: Male
  Weight: 102.3 kg

DRUGS (6)
  1. TRICOR [Concomitant]
  2. METFORMIN HCL [Concomitant]
  3. METOPROLOL TARTRATE [Concomitant]
  4. AVANDIA [Suspect]
     Indication: DIABETES MELLITUS
     Dosage: 4MG TWICE PER DAY
     Route: 048
     Dates: start: 20060809, end: 20070701
  5. NEXIUM [Concomitant]
  6. ZETIA [Concomitant]

REACTIONS (3)
  - MYOCARDIAL INFARCTION [None]
  - MYOCARDIAL ISCHAEMIA [None]
  - CARDIAC DISORDER [None]
